FAERS Safety Report 13939412 (Version 6)
Quarter: 2020Q4

REPORT INFORMATION
  Report Type: Spontaneous
  Country: SE (occurrence: SE)
  Receive Date: 20170906
  Receipt Date: 20201204
  Transmission Date: 20210113
  Serious: Yes (Other)
  Sender: FDA-Public Use
  Company Number: SE-NOVEN PHARMACEUTICALS, INC.-SE2017001086

PATIENT
  Age: 58 Year
  Sex: Female
  Weight: 65 kg

DRUGS (11)
  1. GENOTROPIN [Suspect]
     Active Substance: SOMATROPIN
     Indication: GROWTH HORMONE DEFICIENCY
     Dosage: 0.25 MG, QD 7 INJECTIONS/WEEK
     Route: 065
     Dates: start: 20010829
  2. GENOTROPIN [Suspect]
     Active Substance: SOMATROPIN
     Dosage: 0.25 MG, QD 7 INJECTIONS/WEEK
     Route: 065
     Dates: start: 20150317
  3. DHEA [Suspect]
     Active Substance: PRASTERONE
     Indication: ADRENAL ANDROGEN DEFICIENCY
     Dosage: 25 MG, QD
     Route: 065
     Dates: start: 20100629, end: 20170429
  4. ESTRADIOL/NORETHISTRONE ACETATE [Suspect]
     Active Substance: ESTRADIOL\NORETHINDRONE ACETATE
     Indication: HYPOGONADISM
     Dosage: UNK UNK, UNKNOWN
     Route: 062
  5. ESTRADIOL/NORETHISTRONE ACETATE [Suspect]
     Active Substance: ESTRADIOL\NORETHINDRONE ACETATE
     Indication: LUTEINISING HORMONE DEFICIENCY
     Dosage: UNK, 2/WK
     Route: 062
  6. ESTRADIOL/NORETHISTRONE ACETATE [Suspect]
     Active Substance: ESTRADIOL\NORETHINDRONE ACETATE
     Indication: FOLLICLE STIMULATING HORMONE DEFICIENCY
     Dosage: UNK, 2/WK
     Route: 062
     Dates: start: 20111125
  7. HYDROCORTISONE. [Concomitant]
     Active Substance: HYDROCORTISONE
     Dosage: UNK
     Route: 065
     Dates: start: 1996
  8. THYROXINE [Concomitant]
     Active Substance: LEVOTHYROXINE
  9. CITALOPRAM [Concomitant]
     Active Substance: CITALOPRAM HYDROBROMIDE
  10. OXYCODONE [Concomitant]
     Active Substance: OXYCODONE
     Dosage: 10 MG, UNKNOWN
     Route: 065
  11. PREGABALINE [Concomitant]
     Active Substance: PREGABALIN

REACTIONS (1)
  - Malignant melanoma [Recovered/Resolved]

NARRATIVE: CASE EVENT DATE: 20160916
